FAERS Safety Report 5849974-2 (Version None)
Quarter: 2008Q3

REPORT INFORMATION
  Report Type: 
  Country: None (occurrence: None)
  Receive Date: 20080819
  Receipt Date: 20080808
  Transmission Date: 20090109
  Serious: No
  Sender: FDA-Public Use
  Company Number: GB-PFIZER INC-2006139157

PATIENT
  Sex: Female
  Weight: 70 kg

DRUGS (4)
  1. SOLU-MEDRONE [Suspect]
     Route: 042
     Dates: start: 20061004, end: 20061004
  2. ESTRADERM [Concomitant]
     Route: 061
  3. FISH OIL [Concomitant]
     Dosage: DAILY DOSE:1000MG
  4. LEVOTHYROXINE SODIUM [Concomitant]
     Route: 048

REACTIONS (1)
  - NO ADVERSE EVENT [None]
